FAERS Safety Report 21562905 (Version 2)
Quarter: 2022Q4

REPORT INFORMATION
  Report Type: Spontaneous
  Country: FR (occurrence: FR)
  Receive Date: 20221107
  Receipt Date: 20221114
  Transmission Date: 20230113
  Serious: Yes (Death, Other)
  Sender: FDA-Public Use
  Company Number: None

PATIENT
  Age: 29 Year
  Sex: Female
  Weight: 90 kg

DRUGS (11)
  1. METRONIDAZOLE [Suspect]
     Active Substance: METRONIDAZOLE
     Indication: Colitis
     Dosage: 1000 MILLIGRAM (MG), ONCE DAILY
     Route: 065
     Dates: start: 20220119, end: 20220203
  2. ONDANSETRON [Suspect]
     Active Substance: ONDANSETRON
     Indication: Nausea
     Dosage: 4 MILLIGRAM (MG), 3 TOTAL
     Route: 042
     Dates: start: 20220203, end: 20220204
  3. PANTOPRAZOLE [Suspect]
     Active Substance: PANTOPRAZOLE
     Indication: Product used for unknown indication
     Dosage: 40 MILLIGRAM (MG), ONCE DAILY
     Route: 048
     Dates: start: 20220203, end: 20220204
  4. VANCOMYCIN [Suspect]
     Active Substance: VANCOMYCIN
     Indication: Clostridium difficile colitis
     Dosage: 3 (DF) DOSAGE FORM, 1 TOTAL
     Route: 048
     Dates: start: 20220203, end: 20220204
  5. ACETAMINOPHEN [Suspect]
     Active Substance: ACETAMINOPHEN
     Indication: Abdominal pain
     Dosage: 2 GRAM, ONCE DAILY
     Route: 048
     Dates: start: 20220202, end: 20220204
  6. TRIMEBUTINE [Suspect]
     Active Substance: TRIMEBUTINE
     Indication: Abdominal pain
     Dosage: 02/02: 100MG IV AT 2:40 AND 9:50, 200 MILLIGRAM (MG), ONCE DAILY
     Route: 042
     Dates: start: 20220202, end: 20220202
  7. TRIMEBUTINE [Suspect]
     Active Substance: TRIMEBUTINE
     Dosage: 100MG IV AT 9:59 AM, 100 MILLIGRAM (MG) ONCE DAILY
     Route: 042
     Dates: start: 20220204, end: 20220204
  8. OFLOXACIN [Suspect]
     Active Substance: OFLOXACIN
     Indication: Colitis
     Dosage: 400 MLLIGRAM (MG), ONCE DAILY
     Route: 065
     Dates: start: 20220119, end: 20220203
  9. PROPRANOLOL HYDROCHLORIDE [Suspect]
     Active Substance: PROPRANOLOL HYDROCHLORIDE
     Indication: Abdominal pain
     Dosage: 40 MILLIGRAMS (MG), ONCE DAILY
     Route: 048
     Dates: start: 20220204, end: 20220204
  10. METOCLOPRAMIDE HYDROCHLORIDE [Concomitant]
     Active Substance: METOCLOPRAMIDE HYDROCHLORIDE
     Indication: Nausea
     Dosage: 10 MILLIGRAM (MG), ONCE DAILY
     Route: 042
     Dates: start: 20220202, end: 20220202
  11. PHLOROGLUCINOL [Concomitant]
     Active Substance: PHLOROGLUCINOL
     Indication: Abdominal pain
     Dosage: 120 MILLIGRAM (MG) ONCE DAILY
     Route: 042
     Dates: start: 20220202, end: 20220202

REACTIONS (2)
  - Cardio-respiratory arrest [Fatal]
  - Tachycardia [Recovered/Resolved]

NARRATIVE: CASE EVENT DATE: 20220204
